FAERS Safety Report 4355262-6 (Version None)
Quarter: 2004Q2

REPORT INFORMATION
  Report Type: 
  Country: None (occurrence: None)
  Receive Date: 20040504
  Receipt Date: 20040422
  Transmission Date: 20050107
  Serious: Yes (Death)
  Sender: FDA-Public Use
  Company Number: US-JNJFOC-20040205368

PATIENT
  Age: 51 Year
  Sex: Female

DRUGS (2)
  1. DURAGESIC [Suspect]
     Indication: PAIN
     Dosage: TRANSDERMAL; 175 UG/HR, 1 IN 72 HOUR, TRASDERMAL
     Route: 062
     Dates: end: 20040206
  2. DURAGESIC [Suspect]
     Indication: PAIN
     Dosage: TRANSDERMAL; 175 UG/HR, 1 IN 72 HOUR, TRASDERMAL
     Route: 062
     Dates: start: 20030101

REACTIONS (6)
  - ACCIDENT [None]
  - DROWNING [None]
  - FALL [None]
  - LOSS OF CONSCIOUSNESS [None]
  - OVERDOSE [None]
  - PHARMACEUTICAL PRODUCT COMPLAINT [None]
